FAERS Safety Report 8145303-2 (Version None)
Quarter: 2012Q1

REPORT INFORMATION
  Report Type: 
  Country: None (occurrence: None)
  Receive Date: 20120217
  Receipt Date: 20120206
  Transmission Date: 20120608
  Serious: Yes (Death)
  Sender: FDA-Public Use
  Company Number: ES-ACTELION-A-CH2011-54073

PATIENT
  Sex: Female

DRUGS (5)
  1. VENTAVIS [Concomitant]
     Indication: PULMONARY ARTERIAL HYPERTENSION
     Route: 055
  2. OXYGEN [Concomitant]
  3. ACENOCOUMAROL [Concomitant]
  4. TRACLEER [Suspect]
     Indication: PULMONARY ARTERIAL HYPERTENSION
     Dosage: 62.5 MG, BID
     Route: 048
     Dates: start: 20030303, end: 20040923
  5. LEVOFLOXACIN [Concomitant]

REACTIONS (3)
  - SEPTIC SHOCK [None]
  - PULMONARY ARTERIAL HYPERTENSION [None]
  - DISEASE PROGRESSION [None]
